FAERS Safety Report 15774527 (Version 3)
Quarter: 2019Q1

REPORT INFORMATION
  Report Type: Spontaneous
  Country: JP (occurrence: JP)
  Receive Date: 20181229
  Receipt Date: 20190201
  Transmission Date: 20190417
  Serious: Yes (Hospitalization, Other)
  Sender: FDA-Public Use
  Company Number: JP-GLAXOSMITHKLINE-JP2018JPN232862

PATIENT
  Age: 18 Year
  Sex: Female
  Weight: 29 kg

DRUGS (9)
  1. LAMICTAL [Suspect]
     Active Substance: LAMOTRIGINE
     Indication: EPILEPSY
     Dosage: 100 MG, BID
     Route: 048
     Dates: start: 20181016, end: 20181203
  2. LAMICTAL [Suspect]
     Active Substance: LAMOTRIGINE
     Indication: EPILEPSY
     Dosage: 8 MG, BID,IN THE MORINING AND EVENING
     Route: 048
     Dates: start: 20170905
  3. LAMICTAL [Suspect]
     Active Substance: LAMOTRIGINE
     Dosage: 25 MG, QD,AFTER BREAKFAST
     Route: 048
     Dates: start: 20181016, end: 20181203
  4. LAMICTAL [Suspect]
     Active Substance: LAMOTRIGINE
     Dosage: 200 MG, 1D
     Route: 048
     Dates: start: 20181204
  5. PHENOBAL POWDER [Concomitant]
     Indication: EPILEPSY
     Dosage: 32.5 MG, BID
     Route: 048
     Dates: start: 2003
  6. EXCEGRAN [Concomitant]
     Active Substance: ZONISAMIDE
     Indication: EPILEPSY
     Dosage: 70 MG, BID
     Route: 048
     Dates: start: 2004
  7. LAMICTAL [Suspect]
     Active Substance: LAMOTRIGINE
     Dosage: 100 MG, BID
     Route: 048
     Dates: end: 20181015
  8. TEGRETOL FINE GRANULES [Concomitant]
     Indication: EPILEPSY
     Dosage: 100 MG, BID
     Route: 048
     Dates: start: 2003
  9. E KEPPRA DRY SYRUP [Concomitant]
     Indication: EPILEPSY
     Dosage: 625 MG, BID
     Route: 048
     Dates: start: 201503

REACTIONS (4)
  - Pneumonia viral [Unknown]
  - Pneumonia haemophilus [Unknown]
  - Oculogyric crisis [Recovered/Resolved]
  - Physical deconditioning [Recovering/Resolving]

NARRATIVE: CASE EVENT DATE: 2018
